FAERS Safety Report 9846622 (Version 1)
Quarter: 2014Q1

REPORT INFORMATION
  Report Type: Spontaneous
  Country: AN (occurrence: AN)
  Receive Date: 20140127
  Receipt Date: 20140127
  Transmission Date: 20141002
  Serious: Yes (Other)
  Sender: FDA-Public Use
  Company Number: PHHY2014AN009759

PATIENT
  Age: 70 Year
  Sex: Male

DRUGS (1)
  1. DIOVAN [Suspect]
     Indication: HYPERTENSION
     Dosage: 160 MG, QD
     Route: 048
     Dates: start: 201309, end: 201401

REACTIONS (3)
  - Proteinuria [Unknown]
  - Blood creatinine increased [Unknown]
  - Blood urea increased [Unknown]
